FAERS Safety Report 7214966-8 (Version None)
Quarter: 2011Q1

REPORT INFORMATION
  Report Type: 
  Country: None (occurrence: None)
  Receive Date: 20110107
  Receipt Date: 20100528
  Transmission Date: 20110831
  Serious: No
  Sender: FDA-Public Use
  Company Number: A0865081A

PATIENT
  Age: 61 Year
  Sex: Female

DRUGS (3)
  1. LOVAZA [Suspect]
     Route: 065
  2. ASPIRIN [Concomitant]
  3. NIASPAN [Suspect]
     Indication: LOW DENSITY LIPOPROTEIN INCREASED
     Dosage: 1000MG UNKNOWN
     Route: 065
     Dates: start: 20100101

REACTIONS (4)
  - FLUSHING [None]
  - NAUSEA [None]
  - DIARRHOEA [None]
  - SKIN BURNING SENSATION [None]
